FAERS Safety Report 19357977 (Version 3)
Quarter: 2023Q2

REPORT INFORMATION
  Report Type: Spontaneous
  Country: US (occurrence: US)
  Receive Date: 20210602
  Receipt Date: 20230526
  Transmission Date: 20230722
  Serious: Yes (Hospitalization, Other)
  Sender: FDA-Public Use
  Company Number: US-UCBSA-2021025583

PATIENT

DRUGS (2)
  1. CERTOLIZUMAB PEGOL [Suspect]
     Active Substance: CERTOLIZUMAB PEGOL
     Indication: Psoriasis
     Dosage: UNK
  2. CERTOLIZUMAB PEGOL [Suspect]
     Active Substance: CERTOLIZUMAB PEGOL
     Indication: Psoriatic arthropathy

REACTIONS (10)
  - Herpes zoster [Unknown]
  - Bacterial infection [Unknown]
  - Sepsis [Unknown]
  - Cellulitis [Unknown]
  - Pneumonia bacterial [Unknown]
  - Encephalitis [Unknown]
  - Endocarditis [Unknown]
  - Pyelonephritis [Unknown]
  - Arthritis bacterial [Unknown]
  - Osteomyelitis [Unknown]
